FAERS Safety Report 5216007-0 (Version None)
Quarter: 2007Q1

REPORT INFORMATION
  Report Type: 
  Country: None (occurrence: None)
  Receive Date: 20061122
  Receipt Date: 20060421
  Transmission Date: 20070707
  Serious: Yes (Other)
  Sender: FDA-Public Use
  Company Number: 2006045537

PATIENT
  Age: 48 Year
  Sex: Male

DRUGS (4)
  1. LIPITOR [Suspect]
     Indication: ILL-DEFINED DISORDER
     Dosage: 40 MG, ORAL
     Route: 048
     Dates: start: 20001030, end: 20011025
  2. VIOXX [Concomitant]
  3. ATENOLOL [Concomitant]
  4. DYAZIDE [Concomitant]

REACTIONS (3)
  - BLOOD CREATINE PHOSPHOKINASE MM INCREASED [None]
  - MYALGIA [None]
  - RHABDOMYOLYSIS [None]
